FAERS Safety Report 15858708 (Version 1)
Quarter: 2019Q1

REPORT INFORMATION
  Report Type: Spontaneous
  Country: US (occurrence: US)
  Receive Date: 20190123
  Receipt Date: 20190123
  Transmission Date: 20190417
  Serious: Yes (Hospitalization)
  Sender: FDA-Public Use
  Company Number: None

PATIENT
  Age: 59 Year
  Weight: 70.31 kg

DRUGS (1)
  1. MORINGA LEAF POWDER [Suspect]
     Active Substance: MORINGA OLEIFERA LEAF
     Indication: NUTRITIONAL SUPPLEMENTATION
     Dosage: TEASPOONFULL IN THE MORNING

REACTIONS (1)
  - Atrial fibrillation [None]

NARRATIVE: CASE EVENT DATE: 20181031
